FAERS Safety Report 9015489 (Version 1)
Quarter: 2013Q1

REPORT INFORMATION
  Report Type: Spontaneous
  Country: MX (occurrence: None)
  Receive Date: 20130103
  Receipt Date: 20130103
  Transmission Date: 20140127
  Serious: Yes (Other)
  Sender: FDA-Public Use
  Company Number: ENTC2012-0589

PATIENT
  Age: 85 Year
  Sex: Female

DRUGS (1)
  1. STALEVO [Suspect]
     Indication: PARKINSON^S DISEASE
     Route: 048
     Dates: start: 201210

REACTIONS (1)
  - Cataract [None]
